FAERS Safety Report 9203838 (Version 1)
Quarter: 2013Q1

REPORT INFORMATION
  Report Type: Spontaneous
  Country: GB (occurrence: None)
  Receive Date: 20130329
  Receipt Date: 20130329
  Transmission Date: 20140127
  Serious: Yes (Other)
  Sender: FDA-Public Use
  Company Number: AUR-APL-2013-02538

PATIENT
  Age: 83 Year
  Sex: Female

DRUGS (9)
  1. RANITIDINE [Suspect]
     Indication: PRODUCT USED FOR UNKNOWN INDICATION
     Route: 048
     Dates: start: 20121102, end: 20130104
  2. DABIGATRAN (DABIGATRAN) (DABIGA TRAN) [Concomitant]
  3. FELODIPINE (FELODIPINE) [Concomitant]
  4. LEVOTHYROXINE (LEVOTHYROXINE) [Concomitant]
  5. LOSARTAN (LOSARTAN) [Concomitant]
  6. PREDNISOLONE (PREDNISOLONE) [Concomitant]
  7. RIVAROXABAN (RIVAROXABAN) [Concomitant]
  8. SIMVASTATIN (SIMVASTATIN) [Concomitant]
  9. SOTALOL [Concomitant]

REACTIONS (3)
  - Defaecation urgency [None]
  - Diarrhoea [None]
  - Faeces discoloured [None]
